FAERS Safety Report 15169806 (Version 1)
Quarter: 2018Q3

REPORT INFORMATION
  Report Type: Spontaneous
  Country: US (occurrence: US)
  Receive Date: 20180720
  Receipt Date: 20180720
  Transmission Date: 20181010
  Serious: No
  Sender: FDA-Public Use
  Company Number: US-B.I. PHARMACEUTICALS,INC./RIDGEFIELD-2018-BI-036895

PATIENT
  Age: 43 Year
  Sex: Male

DRUGS (4)
  1. GLYBURIDE. [Concomitant]
     Active Substance: GLYBURIDE
     Indication: DIABETES MELLITUS
     Route: 065
  2. LISINIPRIL [Concomitant]
     Active Substance: LISINOPRIL
     Indication: DIABETES MELLITUS
     Route: 065
  3. JARDIANCE [Suspect]
     Active Substance: EMPAGLIFLOZIN
     Indication: TYPE 2 DIABETES MELLITUS
     Dosage: FORMULATION: TABLETADMINISTRATION CORRECT?NR(NOT REPORTED) ACTION(S)TAKEN WITH PRODUCT:NOT REPORTED
     Route: 048
     Dates: start: 201807
  4. METOPROLOL. [Concomitant]
     Active Substance: METOPROLOL
     Indication: DIABETES MELLITUS
     Route: 065

REACTIONS (3)
  - Pollakiuria [Unknown]
  - Weight decreased [Unknown]
  - Dizziness [Unknown]

NARRATIVE: CASE EVENT DATE: 201807
